FAERS Safety Report 13976723 (Version 1)
Quarter: 2017Q3

REPORT INFORMATION
  Report Type: Spontaneous
  Country: MO (occurrence: MO)
  Receive Date: 20170915
  Receipt Date: 20170915
  Transmission Date: 20171128
  Serious: Yes (Other)
  Sender: FDA-Public Use
  Company Number: MO-TEVA-805777ISR

PATIENT

DRUGS (2)
  1. CARBOPLATIN. [Suspect]
     Active Substance: CARBOPLATIN
     Indication: LUNG NEOPLASM MALIGNANT
     Dates: start: 20170210
  2. PEMETREXED. [Concomitant]
     Active Substance: PEMETREXED

REACTIONS (2)
  - Anaphylactic shock [Unknown]
  - Tongue paralysis [Unknown]

NARRATIVE: CASE EVENT DATE: 20170210
